FAERS Safety Report 14146886 (Version 2)
Quarter: 2017Q4

REPORT INFORMATION
  Report Type: Report from Study
  Country: US (occurrence: US)
  Receive Date: 20171101
  Receipt Date: 20171108
  Transmission Date: 20180321
  Serious: Yes (Death, Hospitalization)
  Sender: FDA-Public Use
  Company Number: US-ROCHE-2015980

PATIENT
  Age: 68 Year
  Sex: Male

DRUGS (1)
  1. CAPECITABINE. [Suspect]
     Active Substance: CAPECITABINE
     Indication: PANCREATIC CARCINOMA METASTATIC
     Dosage: 09/OCT/2017: LAST CAPECITABINE RECEIVED PRIOR TO THE SAE.
     Route: 065

REACTIONS (2)
  - Bile duct obstruction [Unknown]
  - Respiratory failure [Fatal]

NARRATIVE: CASE EVENT DATE: 20171017
